FAERS Safety Report 22259366 (Version 1)
Quarter: 2023Q2

REPORT INFORMATION
  Report Type: Spontaneous
  Country: US (occurrence: US)
  Receive Date: 20230427
  Receipt Date: 20230427
  Transmission Date: 20230722
  Serious: Yes (Other)
  Sender: FDA-Public Use
  Company Number: US-PFIZER INC-PV202300074413

PATIENT
  Age: 70 Year
  Sex: Female

DRUGS (4)
  1. MEDROL [Suspect]
     Active Substance: METHYLPREDNISOLONE
     Dosage: 40 MG (12-DAY COURSE)
  2. VEKLURY [Suspect]
     Active Substance: REMDESIVIR
     Dosage: 200 MG, 1X/DAY (DAY 1)
  3. VEKLURY [Suspect]
     Active Substance: REMDESIVIR
     Dosage: 100 MG, 1X/DAY (FOR 4 DAYS)
  4. DECADRON [Suspect]
     Active Substance: DEXAMETHASONE
     Dosage: 6 MG, 1X/DAY (10-DAY COURSE)

REACTIONS (4)
  - Herpes simplex reactivation [Unknown]
  - Mouth ulceration [Unknown]
  - Oral candidiasis [Unknown]
  - Off label use [Unknown]
